FAERS Safety Report 7804690-2 (Version None)
Quarter: 2011Q4

REPORT INFORMATION
  Report Type: 
  Country: None (occurrence: None)
  Receive Date: 20111010
  Receipt Date: 20110929
  Transmission Date: 20120403
  Serious: Yes (Other)
  Sender: FDA-Public Use
  Company Number: FI-BAYER-2011-079698

PATIENT
  Age: 34 Year
  Sex: Female

DRUGS (3)
  1. MIRENA [Suspect]
     Dosage: 20 ?G, CONT
     Route: 015
     Dates: start: 20110802, end: 20110825
  2. ZOLOFT [Concomitant]
     Indication: TACHYCARDIA
     Dosage: 50 G, QD
  3. ATENOLOL [Concomitant]
     Indication: TACHYCARDIA
     Dosage: 50 MG, PRN
     Dates: end: 20110801

REACTIONS (2)
  - TACHYCARDIA [None]
  - PRODUCT QUALITY ISSUE [None]
